FAERS Safety Report 6071281-6 (Version None)
Quarter: 2009Q1

REPORT INFORMATION
  Report Type: 
  Country: None (occurrence: None)
  Receive Date: 20090204
  Receipt Date: 20090123
  Transmission Date: 20090719
  Serious: Yes (Other)
  Sender: FDA-Public Use
  Company Number: TRP_06055_2009

PATIENT
  Age: 18 Year
  Sex: Male

DRUGS (4)
  1. AMPHOTERICIN B [Suspect]
     Indication: ASPERGILLOSIS
     Dosage: (50 MG 1X/24 HOURS INTRAVENOUS (NOT OTHERWISE SPECIFIED))
     Route: 042
  2. MEROPENEM [Concomitant]
  3. AMIKACIN [Concomitant]
  4. AMPHOTERICIN B [Concomitant]

REACTIONS (13)
  - ALANINE AMINOTRANSFERASE INCREASED [None]
  - ASPARTATE AMINOTRANSFERASE INCREASED [None]
  - ASPERGILLOSIS [None]
  - BILIRUBIN CONJUGATED INCREASED [None]
  - BLOOD ALKALINE PHOSPHATASE INCREASED [None]
  - BLOOD BILIRUBIN INCREASED [None]
  - CONDITION AGGRAVATED [None]
  - DYSPEPSIA [None]
  - DYSPHAGIA [None]
  - EROSIVE OESOPHAGITIS [None]
  - HEPATOTOXICITY [None]
  - OESOPHAGEAL INFECTION [None]
  - OESOPHAGEAL STENOSIS [None]
